FAERS Safety Report 9194227 (Version 1)
Quarter: 2013Q1

REPORT INFORMATION
  Report Type: Report from Study
  Country: KR (occurrence: KR)
  Receive Date: 20130327
  Receipt Date: 20130327
  Transmission Date: 20140127
  Serious: Yes (Other)
  Sender: FDA-Public Use
  Company Number: KR-OTSUKA-US-2013-10542

PATIENT
  Age: 52 Year
  Sex: Female

DRUGS (4)
  1. BUSULFEX [Suspect]
     Indication: PLASMA CELL MYELOMA
     Dosage: 3.2 MG/KG, DAILY DOSE
     Route: 042
     Dates: start: 20120520, end: 20120522
  2. BORTEZOMIB [Suspect]
     Indication: PLASMA CELL MYELOMA
     Dosage: UNK, DAILY DOSE
     Route: 042
     Dates: start: 20120519, end: 20120519
  3. BORTEZOMIB [Suspect]
     Dosage: UNK, DAILY DOSE
     Route: 042
     Dates: start: 20120522, end: 20120522
  4. MELPHALAN [Suspect]
     Indication: PLASMA CELL MYELOMA
     Dosage: UNK MG/M2, UNK
     Route: 042
     Dates: start: 20120523, end: 20120523

REACTIONS (1)
  - Septic shock [Unknown]
